FAERS Safety Report 15134576 (Version 1)
Quarter: 2018Q3

REPORT INFORMATION
  Report Type: Spontaneous
  Country: DK (occurrence: DK)
  Receive Date: 20180712
  Receipt Date: 20180712
  Transmission Date: 20181010
  Serious: Yes (Other)
  Sender: FDA-Public Use
  Company Number: DK-009507513-1807DNK004296

PATIENT
  Age: 60 Year
  Sex: Female

DRUGS (1)
  1. ALENDRONATE SODIUM. [Suspect]
     Active Substance: ALENDRONATE SODIUM
     Indication: OSTEOPOROSIS
     Dosage: UNK
     Route: 048
     Dates: start: 2008, end: 201404

REACTIONS (9)
  - Dental care [Unknown]
  - Jaw operation [Unknown]
  - Dental implantation [Unknown]
  - Loose tooth [Unknown]
  - Osteonecrosis of jaw [Unknown]
  - Tooth disorder [Unknown]
  - Tooth extraction [Unknown]
  - Tooth loss [Not Recovered/Not Resolved]
  - Toothache [Unknown]

NARRATIVE: CASE EVENT DATE: 2012
